FAERS Safety Report 4633675-2 (Version None)
Quarter: 2005Q2

REPORT INFORMATION
  Report Type: 
  Country: None (occurrence: None)
  Receive Date: 20050325
  Receipt Date: 20041214
  Transmission Date: 20051028
  Serious: No
  Sender: FDA-Public Use
  Company Number: USA041286095

PATIENT
  Sex: Female
  Weight: 74 kg

DRUGS (5)
  1. FORTEO [Suspect]
     Dosage: 20 UG/1 DAY
     Dates: start: 20031201
  2. ARICEPT [Concomitant]
  3. NAMENDA (MEMANTINE HYDROCHLORIDE) [Concomitant]
  4. CELEBREX [Concomitant]
  5. VITAMIN E [Concomitant]

REACTIONS (3)
  - ASTHENIA [None]
  - HYPERSOMNIA [None]
  - IRRITABILITY [None]
